FAERS Safety Report 9087311 (Version 3)
Quarter: 2013Q3

REPORT INFORMATION
  Report Type: Report from Study
  Country: JP (occurrence: JP)
  Receive Date: 20130217
  Receipt Date: 20130718
  Transmission Date: 20140515
  Serious: Yes (Other)
  Sender: FDA-Public Use
  Company Number: JP-JNJFOC-20130206473

PATIENT
  Age: 65 Year
  Sex: Female

DRUGS (18)
  1. GOLIMUMAB [Suspect]
     Indication: RHEUMATOID ARTHRITIS
     Route: 058
     Dates: start: 20120712
  2. GOLIMUMAB [Suspect]
     Indication: RHEUMATOID ARTHRITIS
     Route: 058
     Dates: start: 20120809
  3. GOLIMUMAB [Suspect]
     Indication: RHEUMATOID ARTHRITIS
     Route: 058
     Dates: start: 20120906
  4. GOLIMUMAB [Suspect]
     Indication: RHEUMATOID ARTHRITIS
     Route: 058
     Dates: start: 20121004
  5. GOLIMUMAB [Suspect]
     Indication: RHEUMATOID ARTHRITIS
     Route: 058
     Dates: start: 20121101
  6. GOLIMUMAB [Suspect]
     Indication: RHEUMATOID ARTHRITIS
     Route: 058
     Dates: start: 20120614
  7. GOLIMUMAB [Suspect]
     Indication: RHEUMATOID ARTHRITIS
     Route: 058
     Dates: start: 20120512
  8. METHOTREXATE [Concomitant]
     Indication: RHEUMATOID ARTHRITIS
     Dates: end: 20121101
  9. METHOTREXATE [Concomitant]
     Indication: RHEUMATOID ARTHRITIS
     Dates: start: 20121102
  10. BUCILLAMINE [Concomitant]
     Indication: RHEUMATOID ARTHRITIS
  11. PREDONINE [Concomitant]
     Indication: RHEUMATOID ARTHRITIS
     Route: 048
  12. VOLTAREN [Concomitant]
     Indication: RHEUMATOID ARTHRITIS
  13. TIZANIDINE HCL [Concomitant]
     Indication: RHEUMATOID ARTHRITIS
  14. MUCOSTA [Concomitant]
     Indication: PROPHYLAXIS
  15. EVISTA [Concomitant]
     Indication: PROPHYLAXIS
  16. COIX EXTRACT [Concomitant]
     Indication: SKIN PAPILLOMA
     Route: 048
  17. MUCODYNE [Concomitant]
     Indication: PRODUCTIVE COUGH
     Route: 048
  18. LOXONIN [Concomitant]
     Indication: RHEUMATOID ARTHRITIS
     Dates: start: 20100114

REACTIONS (1)
  - Pneumonia [Recovering/Resolving]
